FAERS Safety Report 9231541 (Version 2)
Quarter: 2013Q3

REPORT INFORMATION
  Report Type: Report from Study
  Country: KR (occurrence: KR)
  Receive Date: 20130415
  Receipt Date: 20130910
  Transmission Date: 20140515
  Serious: Yes (Hospitalization)
  Sender: FDA-Public Use
  Company Number: KR-009507513-1304KOR005221

PATIENT
  Age: 53 Year
  Sex: Female
  Weight: 62 kg

DRUGS (10)
  1. DEXAMETHASONE [Suspect]
     Indication: PLASMA CELL MYELOMA
     Dosage: 20 MG, ON DAY 1, 2, 4, 5, 8, 9, 11 AND 12 EVERY 21 DAYS
     Route: 048
     Dates: start: 20130225, end: 20130317
  2. DEXAMETHASONE [Suspect]
     Dosage: 20 MG, ON DAY 1, 2, 4, 5, 8, 9, 11 AND 12 EVERY 21 DAYS
     Route: 048
     Dates: start: 20130318
  3. STUDY DRUG (UNSPECIFIED) [Suspect]
     Indication: PLASMA CELL MYELOMA
     Dosage: UNK
     Dates: start: 20130225
  4. BORTEZOMIB [Suspect]
     Indication: PLASMA CELL MYELOMA
     Dosage: 1.3 MG/M2, ON DAYS 1, 4 8, 11 EVERY 21 DAYS
     Route: 058
     Dates: start: 20130225, end: 20130317
  5. BORTEZOMIB [Suspect]
     Dosage: 1.3 MG/M2, ON DAYS 1, 4 8, 11 EVERY 21 DAYS
     Route: 058
     Dates: start: 20130318
  6. ZOVIRAX [Concomitant]
     Indication: PROPHYLAXIS
     Dosage: UNK
     Dates: start: 20130225
  7. CALCIUM CARBONATE [Concomitant]
     Indication: PROPHYLAXIS
     Dosage: UNK
     Dates: start: 20130213
  8. CHOLECALCIFEROL [Concomitant]
     Indication: PROPHYLAXIS
     Dosage: UNK
     Dates: start: 20130213
  9. FAMOTIDINE [Concomitant]
     Indication: GASTRITIS PROPHYLAXIS
     Dosage: UNK
     Dates: start: 20130225
  10. SEPTRIN [Concomitant]
     Indication: PROPHYLAXIS
     Dosage: UNK
     Dates: start: 20130225

REACTIONS (1)
  - Upper respiratory tract infection [Recovered/Resolved]
